FAERS Safety Report 25810228 (Version 2)
Quarter: 2025Q4

REPORT INFORMATION
  Report Type: Report from Study
  Country: EU (occurrence: EU)
  Receive Date: 20250917
  Receipt Date: 20251009
  Transmission Date: 20260117
  Serious: No
  Sender: CSL BEHRING
  Company Number: EU-BEH-2025219056

PATIENT
  Age: 87 Year
  Sex: Male
  Weight: 78.6 kg

DRUGS (4)
  1. HIZENTRA [Suspect]
     Active Substance: HUMAN IMMUNOGLOBULIN G
     Indication: Chronic lymphocytic leukaemia
     Dosage: 4 G, BIW
     Route: 058
  2. HIZENTRA [Suspect]
     Active Substance: HUMAN IMMUNOGLOBULIN G
     Indication: Chronic sinusitis
  3. HIZENTRA [Suspect]
     Active Substance: HUMAN IMMUNOGLOBULIN G
     Indication: Bone marrow transplant
  4. HIZENTRA [Suspect]
     Active Substance: HUMAN IMMUNOGLOBULIN G
     Indication: Non-Hodgkin^s lymphoma

REACTIONS (1)
  - Terminal state [Fatal]

NARRATIVE: CASE EVENT DATE: 20250731
